FAERS Safety Report 19035835 (Version 1)
Quarter: 2021Q1

REPORT INFORMATION
  Report Type: Spontaneous
  Country: DE (occurrence: DE)
  Receive Date: 20210321
  Receipt Date: 20210321
  Transmission Date: 20210420
  Serious: Yes (Life-Threatening, Hospitalization, Other)
  Sender: FDA-Public Use
  Company Number: DE-TEVA-2021-DE-1890168

PATIENT
  Age: 69 Year
  Sex: Female

DRUGS (14)
  1. MARCUMAR [Suspect]
     Active Substance: PHENPROCOUMON
     Dosage: 3 MG, ACCORDING TO INR
     Route: 065
  2. ATORVASTATIN [Concomitant]
     Active Substance: ATORVASTATIN
     Dosage: 40 MILLIGRAM DAILY; 0?0?1?0
  3. ENTRESTO [Interacting]
     Active Substance: SACUBITRIL\VALSARTAN
     Dosage: 2 DOSAGE FORMS DAILY; 49|51 MG, 1?0?1?0
     Route: 065
  4. LEVOTHYROXINE SODIUM. [Concomitant]
     Active Substance: LEVOTHYROXINE SODIUM
     Dosage: 50 MICROGRAM DAILY; 1?0?0?0
  5. ZINKAMIN?FALK 15MG HARTKAPSELN [Concomitant]
     Dosage: 15 MILLIGRAM DAILY; 1?0?0?0
  6. ESOMEPRAZOL [Concomitant]
     Active Substance: ESOMEPRAZOLE
     Dosage: 20 MILLIGRAM DAILY; 0?0?1?0
  7. METOPROLOL. [Concomitant]
     Active Substance: METOPROLOL
     Dosage: 95 MG, 1?0?0.5?0
  8. PREGABALIN. [Concomitant]
     Active Substance: PREGABALIN
     Dosage: 300 MILLIGRAM DAILY; 1?0?1?0
  9. SPIRONOLACTON [Suspect]
     Active Substance: SPIRONOLACTONE
     Indication: PULMONARY HYPERTENSION
     Dosage: 50 MILLIGRAM DAILY;  1?0?0?0
     Route: 065
     Dates: start: 20201119
  10. TORASEMID [Suspect]
     Active Substance: TORSEMIDE
     Dosage: 4 DOSAGE FORMS DAILY; 10 MG, 2?2?0?0
     Route: 065
  11. FOLIC ACID. [Concomitant]
     Active Substance: FOLIC ACID
     Dosage: 5 MILLIGRAM DAILY; 1?0?0?0
  12. EZETIMIB [Concomitant]
     Active Substance: EZETIMIBE
     Dosage: 10 MILLIGRAM DAILY; 0?0?1?0
  13. ENTRESTO [Concomitant]
     Active Substance: SACUBITRIL\VALSARTAN
     Indication: PULMONARY HYPERTENSION
     Dates: start: 20201119
  14. DEKRISTOL 20000I.E. [Concomitant]
     Dosage: 20,000 IU / WEEK, 2X

REACTIONS (10)
  - Psychomotor retardation [Unknown]
  - Asthenia [Unknown]
  - Hyperkalaemia [Unknown]
  - Anaemia [Unknown]
  - Acute kidney injury [Unknown]
  - Product monitoring error [Unknown]
  - Product prescribing error [Unknown]
  - Labelled drug-drug interaction medication error [Unknown]
  - Gastrointestinal haemorrhage [Unknown]
  - Thrombocytopenia [Unknown]
